FAERS Safety Report 19001829 (Version 2)
Quarter: 2021Q1

REPORT INFORMATION
  Report Type: Spontaneous
  Country: JP (occurrence: JP)
  Receive Date: 20210312
  Receipt Date: 20210331
  Transmission Date: 20210420
  Serious: Yes (Death)
  Sender: FDA-Public Use
  Company Number: JP-ELI_LILLY_AND_COMPANY-JP202103004700AA

PATIENT
  Age: 95 Year
  Sex: Male

DRUGS (2)
  1. TRAZENTA [Concomitant]
     Active Substance: LINAGLIPTIN
  2. TRULICITY [Suspect]
     Active Substance: DULAGLUTIDE
     Indication: TYPE 2 DIABETES MELLITUS
     Dosage: 0.75 MG
     Route: 058

REACTIONS (2)
  - Marasmus [Fatal]
  - Diarrhoea [Unknown]
